FAERS Safety Report 9841932 (Version 1)
Quarter: 2013Q4

REPORT INFORMATION
  Report Type: Spontaneous
  Country: US (occurrence: None)
  Receive Date: 20131219
  Receipt Date: 20131219
  Transmission Date: 20140711
  Serious: Yes (Hospitalization)
  Sender: FDA-Public Use
  Company Number: 163-20785-13050867

PATIENT
  Age: 14 Year
  Sex: Female
  Weight: 81.6 kg

DRUGS (4)
  1. THALOMID [Suspect]
     Indication: SARCOMA
     Dosage: 150 MG, 1 IN 1 D, PO
     Route: 048
     Dates: start: 20120821
  2. DULOXETINE (DULOXETINE) [Concomitant]
  3. METHYLPHENIDATE ER (METHYLPHENIDATE) [Concomitant]
  4. ASPIRINE (ACETYLSALICYLIC ACID) [Concomitant]

REACTIONS (4)
  - Suicidal ideation [None]
  - Depression [None]
  - Adverse drug reaction [None]
  - Emotional disorder [None]
